FAERS Safety Report 16465133 (Version 1)
Quarter: 2019Q2

REPORT INFORMATION
  Report Type: Report from Study
  Country: ES (occurrence: ES)
  Receive Date: 20190621
  Receipt Date: 20190621
  Transmission Date: 20190711
  Serious: Yes (Hospitalization)
  Sender: FDA-Public Use
  Company Number: ES-BAUSCH-BL-2019-011049

PATIENT
  Age: 63 Year
  Sex: Male

DRUGS (5)
  1. DARATUMUMAB [Suspect]
     Active Substance: DARATUMUMAB
     Route: 042
     Dates: start: 20180813, end: 20180813
  2. LENALIDOMIDE [Suspect]
     Active Substance: LENALIDOMIDE
     Route: 048
     Dates: start: 20180815
  3. DARATUMUMAB [Suspect]
     Active Substance: DARATUMUMAB
     Indication: PLASMA CELL MYELOMA
     Route: 042
     Dates: start: 20180822
  4. LENALIDOMIDE [Suspect]
     Active Substance: LENALIDOMIDE
     Indication: PLASMA CELL MYELOMA
     Route: 048
     Dates: start: 20180813
  5. DEXAMETHASONE. [Suspect]
     Active Substance: DEXAMETHASONE
     Indication: PLASMA CELL MYELOMA
     Route: 048
     Dates: start: 20180814

REACTIONS (8)
  - General physical health deterioration [Unknown]
  - Chest pain [Recovered/Resolved]
  - Pyrexia [Recovered/Resolved]
  - Malaise [Recovered/Resolved]
  - Anaemia [Recovering/Resolving]
  - Platelet count decreased [Recovering/Resolving]
  - Infusion related reaction [Recovered/Resolved]
  - Extravasation [Recovered/Resolved]

NARRATIVE: CASE EVENT DATE: 20180813
